FAERS Safety Report 9056615 (Version 3)
Quarter: 2014Q2

REPORT INFORMATION
  Report Type: Spontaneous
  Country: JP (occurrence: JP)
  Receive Date: 20130204
  Receipt Date: 20140617
  Transmission Date: 20141212
  Serious: Yes (Life-Threatening, Other)
  Sender: FDA-Public Use
  Company Number: PHHY2013JP008437

PATIENT
  Age: 66 Year
  Sex: Male

DRUGS (5)
  1. GLYCERYL TRINITRATE [Suspect]
     Indication: PRINZMETAL ANGINA
     Dosage: 25 MG,DAILY (BEFORE SLEEP)
     Route: 062
  2. AMLODIPINE [Suspect]
     Indication: PRINZMETAL ANGINA
     Dosage: 2.5 MG, DAILY (1DF)
  3. NICORANDIL [Suspect]
     Indication: PRINZMETAL ANGINA
     Dosage: 5 MG, TID
     Route: 048
  4. NICORANDIL [Suspect]
     Dosage: 5 MG, BID
     Route: 048
  5. NICORANDIL [Suspect]
     Route: 042

REACTIONS (13)
  - Cardio-respiratory arrest [Unknown]
  - Pulseless electrical activity [Unknown]
  - Ventricular fibrillation [Unknown]
  - Electrocardiogram ST segment elevation [Recovered/Resolved]
  - Cold sweat [Unknown]
  - Dizziness [Unknown]
  - Bradycardia [Unknown]
  - Discomfort [Unknown]
  - Nausea [Unknown]
  - Loss of consciousness [Unknown]
  - Arteriospasm coronary [Unknown]
  - Fall [Unknown]
  - Drug resistance [Unknown]
